FAERS Safety Report 11031322 (Version 1)
Quarter: 2015Q2

REPORT INFORMATION
  Report Type: Spontaneous
  Country: US (occurrence: US)
  Receive Date: 20150415
  Receipt Date: 20150415
  Transmission Date: 20150821
  Serious: No
  Sender: FDA-Public Use
  Company Number: US-PFIZER INC-2015122621

PATIENT
  Age: 31 Year
  Sex: Male
  Weight: 82 kg

DRUGS (1)
  1. VIAGRA [Suspect]
     Active Substance: SILDENAFIL CITRATE
     Indication: ERECTILE DYSFUNCTION
     Dosage: UNK
     Dates: start: 20150401, end: 20150403

REACTIONS (5)
  - Penis disorder [Unknown]
  - Hyperhidrosis [Not Recovered/Not Resolved]
  - Penile pain [Unknown]
  - Skin discolouration [Recovering/Resolving]
  - Product use issue [Recovered/Resolved]

NARRATIVE: CASE EVENT DATE: 20150401
